FAERS Safety Report 5472320-3 (Version None)
Quarter: 2007Q3

REPORT INFORMATION
  Report Type: 
  Country: None (occurrence: None)
  Receive Date: 20070927
  Receipt Date: 20070914
  Transmission Date: 20080115
  Serious: Yes (Other)
  Sender: FDA-Public Use
  Company Number: 2007BI009519

PATIENT
  Age: 27 Year
  Sex: Female

DRUGS (2)
  1. TYSABRI [Suspect]
     Indication: MULTIPLE SCLEROSIS
     Dosage: 300  MG;QM; IV
     Route: 042
     Dates: start: 20070329, end: 20070426
  2. TYSABRI [Suspect]
     Indication: MULTIPLE SCLEROSIS
     Dosage: 300  MG;QM; IV
     Route: 042
     Dates: start: 20070827, end: 20070827

REACTIONS (11)
  - CHILLS [None]
  - ERYTHEMA [None]
  - FLUSHING [None]
  - HEADACHE [None]
  - HYPERHIDROSIS [None]
  - INFUSION RELATED REACTION [None]
  - PAIN [None]
  - PHARYNGOLARYNGEAL PAIN [None]
  - SHOCK [None]
  - TACHYCARDIA [None]
  - VOMITING [None]
